FAERS Safety Report 6307536-7 (Version None)
Quarter: 2009Q3

REPORT INFORMATION
  Report Type: 
  Country: None (occurrence: None)
  Receive Date: 20090813
  Receipt Date: 20090810
  Transmission Date: 20100115
  Serious: Yes (Death)
  Sender: FDA-Public Use
  Company Number: JP-JNJFOC-20090803461

PATIENT
  Sex: Male

DRUGS (18)
  1. DUROTEP MT PATCH [Suspect]
     Indication: CANCER PAIN
     Route: 062
  2. P GUARD [Concomitant]
     Indication: CANCER PAIN
     Route: 048
  3. OXINORM (OXYCODONE HYDROCHLORIDE) [Concomitant]
     Indication: CANCER PAIN
     Route: 048
  4. MAGLAX [Concomitant]
     Indication: CONSTIPATION
     Route: 048
  5. STANZOME [Concomitant]
     Indication: PROPHYLAXIS
     Route: 048
  6. RINDERON [Concomitant]
     Route: 048
  7. RINDERON [Concomitant]
     Indication: SOMNOLENCE
     Route: 048
  8. MYSLEE [Concomitant]
     Indication: PROPHYLAXIS
     Route: 048
  9. RIZE [Concomitant]
     Indication: PROPHYLAXIS
     Route: 048
  10. CONFATANIN [Concomitant]
     Route: 048
  11. CONFATANIN [Concomitant]
     Indication: ANALGESIC THERAPY
     Route: 048
  12. SEROQUEL [Concomitant]
     Indication: NAUSEA
     Route: 048
  13. NOVAMIN [Concomitant]
     Indication: NAUSEA
     Route: 048
  14. ADONA [Concomitant]
     Indication: HAEMATURIA
     Route: 048
  15. TRANSAMIN [Concomitant]
     Indication: HAEMATURIA
     Route: 048
  16. ZITHROMAX [Concomitant]
     Indication: PYREXIA
     Route: 048
  17. DIMETICONE [Concomitant]
     Indication: CONSTIPATION
     Route: 048
  18. GLYCERINE [Concomitant]
     Indication: CONSTIPATION

REACTIONS (4)
  - BLADDER CANCER [None]
  - DRUG ADMINISTRATION ERROR [None]
  - PAIN [None]
  - PYREXIA [None]
